FAERS Safety Report 9369576 (Version 1)
Quarter: 2013Q2

REPORT INFORMATION
  Report Type: Spontaneous
  Country: US (occurrence: US)
  Receive Date: 20130626
  Receipt Date: 20130626
  Transmission Date: 20140414
  Serious: No
  Sender: FDA-Public Use
  Company Number: US-MYLANLABS-2012S1010715

PATIENT
  Age: 86 Year
  Sex: Female
  Weight: 50.8 kg

DRUGS (4)
  1. PERFOROMIST (FORMOTEROL FUMARATE) INHALATION SOLUTION [Suspect]
     Indication: ASTHMA
     Route: 055
     Dates: start: 201204
  2. PERFOROMIST (FORMOTEROL FUMARATE) INHALATION SOLUTION [Suspect]
     Indication: OFF LABEL USE
     Route: 055
     Dates: start: 201204
  3. COMBIVENT [Concomitant]
  4. FLOVENT [Concomitant]

REACTIONS (1)
  - Pain in extremity [Not Recovered/Not Resolved]
